FAERS Safety Report 14210936 (Version 1)
Quarter: 2017Q4

REPORT INFORMATION
  Report Type: Report from Study
  Country: AR (occurrence: AR)
  Receive Date: 20171121
  Receipt Date: 20171121
  Transmission Date: 20180321
  Serious: Yes (Hospitalization)
  Sender: FDA-Public Use
  Company Number: PHHY2017AR171491

PATIENT
  Age: 83 Year
  Sex: Female

DRUGS (1)
  1. COSENTYX [Suspect]
     Active Substance: SECUKINUMAB
     Indication: PSORIASIS
     Dosage: 300 MG, QMO
     Route: 065
     Dates: start: 20160615

REACTIONS (5)
  - Anaemia [Not Recovered/Not Resolved]
  - Skin discolouration [Not Recovered/Not Resolved]
  - Intervertebral disc protrusion [Unknown]
  - Inappropriate schedule of drug administration [Unknown]
  - Joint dislocation [Unknown]

NARRATIVE: CASE EVENT DATE: 20160615
